FAERS Safety Report 5143876-5 (Version None)
Quarter: 2006Q4

REPORT INFORMATION
  Report Type: 
  Country: None (occurrence: None)
  Receive Date: 20061030
  Receipt Date: 20061017
  Transmission Date: 20070319
  Serious: Yes (Hospitalization)
  Sender: FDA-Public Use
  Company Number: 2006126505

PATIENT
  Age: 66 Year
  Sex: Female
  Weight: 52.6173 kg

DRUGS (19)
  1. SUTENT [Suspect]
     Indication: PANCREATIC CARCINOMA
     Dosage: 50 MG (50 MG, 1 IN 1 D), ORAL
     Route: 048
     Dates: start: 20061005
  2. XELODA [Suspect]
     Indication: PANCREATIC CARCINOMA
     Dosage: 3000 MG (1500 MG, 2 IN 1 D),ORAL
     Route: 048
     Dates: start: 20061004
  3. KYTRIL [Concomitant]
  4. ZOFRAN [Concomitant]
  5. REGLAN [Concomitant]
  6. LASIX [Concomitant]
  7. SPIRONOLACTONE [Concomitant]
  8. CENTRUM SILVER (ASCORBIC ACID, CALCIUM, MINERAL NOS, RETINOL, TOCOPHER [Concomitant]
  9. ACETAMINOPHEN [Concomitant]
  10. POLYETHYLENE GLYCOL (POLYETHENE GLYCOL) [Concomitant]
  11. MORPHINE SULFATE [Concomitant]
  12. ENULOSE [Concomitant]
  13. COLACE (DOCUSATE SODIUM) [Concomitant]
  14. ATENOLOL [Concomitant]
  15. NORVASC [Concomitant]
  16. MORPHINE SULFATE [Concomitant]
  17. PROMETHAZINE [Concomitant]
  18. ALLOPURINOL [Concomitant]
  19. SPIRONOLACTONE [Concomitant]

REACTIONS (1)
  - RENAL FAILURE [None]
